FAERS Safety Report 12559316 (Version 3)
Quarter: 2016Q3

REPORT INFORMATION
  Report Type: Report from Study
  Country: US (occurrence: US)
  Receive Date: 20160715
  Receipt Date: 20160802
  Transmission Date: 20161109
  Serious: No
  Sender: FDA-Public Use
  Company Number: US-ALEXION-A201605250

PATIENT
  Sex: Female

DRUGS (2)
  1. STRENSIQ [Suspect]
     Active Substance: ASFOTASE ALFA
     Dosage: UNK 6 TIMES A WEEK
     Route: 058
     Dates: start: 20160721
  2. STRENSIQ [Suspect]
     Active Substance: ASFOTASE ALFA
     Indication: PRODUCT USED FOR UNKNOWN INDICATION
     Dosage: 80 MG, UNK
     Route: 058

REACTIONS (7)
  - Hyperhidrosis [Not Recovered/Not Resolved]
  - Throat tightness [Unknown]
  - Drug hypersensitivity [Unknown]
  - Fatigue [Unknown]
  - Arthralgia [Unknown]
  - Quality of life decreased [Unknown]
  - Chills [Not Recovered/Not Resolved]

NARRATIVE: CASE EVENT DATE: 201607
